FAERS Safety Report 11876866 (Version 1)
Quarter: 2015Q4

REPORT INFORMATION
  Report Type: Spontaneous
  Country: US (occurrence: US)
  Receive Date: 20151229
  Receipt Date: 20151229
  Transmission Date: 20160305
  Serious: No
  Sender: FDA-Public Use
  Company Number: US-TAKEDA-2015TUS018796

PATIENT
  Sex: Female
  Weight: 80.73 kg

DRUGS (2)
  1. CONTRAVE [Suspect]
     Active Substance: BUPROPION HYDROCHLORIDE\NALTREXONE HYDROCHLORIDE
     Indication: OBESITY
     Dosage: 8/90 MG, QD
     Route: 048
     Dates: start: 20151209, end: 20151216
  2. CONTRAVE [Suspect]
     Active Substance: BUPROPION HYDROCHLORIDE\NALTREXONE HYDROCHLORIDE
     Dosage: 8/90 MG, BID
     Route: 048
     Dates: start: 20151216, end: 20151220

REACTIONS (5)
  - Agitation [Recovering/Resolving]
  - Panic attack [Recovering/Resolving]
  - Anger [Recovering/Resolving]
  - Poor quality sleep [Recovering/Resolving]
  - Impaired work ability [Recovering/Resolving]
